FAERS Safety Report 15367121 (Version 1)
Quarter: 2018Q3

REPORT INFORMATION
  Report Type: Spontaneous
  Country: US (occurrence: US)
  Receive Date: 20180910
  Receipt Date: 20180910
  Transmission Date: 20181010
  Serious: No
  Sender: FDA-Public Use
  Company Number: US-ALLERGAN-1835806US

PATIENT
  Sex: Female

DRUGS (1)
  1. SUCRALFATE UNK [Suspect]
     Active Substance: SUCRALFATE
     Indication: GASTROOESOPHAGEAL REFLUX DISEASE
     Dosage: UNK
     Route: 065

REACTIONS (2)
  - Dizziness [Unknown]
  - Off label use [Unknown]
